FAERS Safety Report 5478745-4 (Version None)
Quarter: 2007Q4

REPORT INFORMATION
  Report Type: 
  Country: None (occurrence: None)
  Receive Date: 20071005
  Receipt Date: 20071003
  Transmission Date: 20080405
  Serious: Yes (Hospitalization)
  Sender: FDA-Public Use
  Company Number: US-BOEHRINGER INGELHEIM PHARMACEUTICALS, INC.-2007-BP-15494BP

PATIENT
  Sex: Female

DRUGS (2)
  1. MIRAPEX [Suspect]
     Indication: RESTLESS LEGS SYNDROME
     Route: 048
     Dates: start: 20050101, end: 20070610
  2. TRILEPTAL [Concomitant]
     Indication: NEUROPATHY PERIPHERAL

REACTIONS (6)
  - BLOOD URINE PRESENT [None]
  - DYSURIA [None]
  - INCREASED APPETITE [None]
  - PULMONARY EMBOLISM [None]
  - SOMNOLENCE [None]
  - URINE ODOUR ABNORMAL [None]
